FAERS Safety Report 5218029-2 (Version None)
Quarter: 2007Q1

REPORT INFORMATION
  Report Type: 
  Country: None (occurrence: None)
  Receive Date: 20061130
  Receipt Date: 20060714
  Transmission Date: 20070707
  Serious: Yes (Other)
  Sender: FDA-Public Use
  Company Number: US200607002680

PATIENT
  Age: 61 Year
  Sex: Male
  Weight: 72.6 kg

DRUGS (5)
  1. ZYPREXA [Suspect]
     Indication: DRUG USE FOR UNKNOWN INDICATION
     Dosage: UNK UNK, EACH EVENING, ORAL
     Route: 048
     Dates: start: 20060501
  2. DEPAKOTE [Concomitant]
  3. LYNESTRENOL (LYNESTRENOL) [Concomitant]
  4. RESTORIL [Concomitant]
  5. KLONOPIN [Concomitant]

REACTIONS (5)
  - DYSPNOEA [None]
  - FEAR [None]
  - FEELING ABNORMAL [None]
  - GAIT DISTURBANCE [None]
  - WEIGHT INCREASED [None]
